FAERS Safety Report 9159399 (Version 1)
Quarter: 2013Q1

REPORT INFORMATION
  Report Type: Spontaneous
  Country: US (occurrence: None)
  Receive Date: 20130214
  Receipt Date: 20130214
  Transmission Date: 20140127
  Serious: Yes (Hospitalization, Other)
  Sender: FDA-Public Use
  Company Number: 2013-01893

PATIENT
  Age: 18 Year
  Sex: Male

DRUGS (2)
  1. LEVETIRACETAM (UNKNOWN) (LEVETIRACETAM) [Suspect]
     Indication: CONVULSION
  2. PHENYTOIN [Suspect]
     Indication: CONVULSION

REACTIONS (7)
  - Drug reaction with eosinophilia and systemic symptoms [None]
  - Drug hypersensitivity [None]
  - Hepatic function abnormal [None]
  - Prothrombin time prolonged [None]
  - International normalised ratio increased [None]
  - Transaminases increased [None]
  - General physical health deterioration [None]
